FAERS Safety Report 6077397-2 (Version None)
Quarter: 2009Q1

REPORT INFORMATION
  Report Type: 
  Country: None (occurrence: None)
  Receive Date: 20090213
  Receipt Date: 20090203
  Transmission Date: 20090719
  Serious: Yes (Death, Life-Threatening, Other)
  Sender: FDA-Public Use
  Company Number: GB-JNJFOC-20090102824

PATIENT
  Sex: Female
  Weight: 85 kg

DRUGS (12)
  1. REMICADE [Suspect]
     Indication: RHEUMATOID ARTHRITIS
     Route: 042
  2. METHOTREXATE [Concomitant]
  3. PREDNISOLONE [Concomitant]
  4. ADIZEM [Concomitant]
  5. ALENDRONATE SODIUM [Concomitant]
  6. AMITRIPTYLINE HCL [Concomitant]
  7. ASPIRIN [Concomitant]
  8. ACETAMINOPHEN WITH PROPOXYPHENE HCL TAB [Concomitant]
  9. DIHYDROCODEINE BITARTRATE INJ [Concomitant]
  10. GTN SPRAY [Concomitant]
  11. OXYBUTYMIN [Concomitant]
  12. SALBUTAMOL [Concomitant]

REACTIONS (4)
  - ANKLE FRACTURE [None]
  - RHEUMATOID ARTHRITIS [None]
  - SEPSIS [None]
  - URINARY TRACT INFECTION [None]
